FAERS Safety Report 5464021-2 (Version None)
Quarter: 2007Q3

REPORT INFORMATION
  Report Type: 
  Country: None (occurrence: None)
  Receive Date: 20070919
  Receipt Date: 20070904
  Transmission Date: 20080115
  Serious: Yes (Hospitalization, Other)
  Sender: FDA-Public Use
  Company Number: 2007US-09876

PATIENT
  Age: 62 Year
  Sex: Male

DRUGS (10)
  1. ISOPTIN SR [Suspect]
     Indication: DRUG USE FOR UNKNOWN INDICATION
     Dosage: 360 MG, QD,
  2. ATENOLOL [Suspect]
     Indication: DRUG USE FOR UNKNOWN INDICATION
     Dosage: 25 MG, TID,
  3. TERAZOSIN HYDROCHLORIDE [Suspect]
     Indication: DRUG USE FOR UNKNOWN INDICATION
     Dosage: 5 MG, QD,
  4. CLONIDINE [Suspect]
     Indication: DRUG USE FOR UNKNOWN INDICATION
     Dosage: 0.4 MG, 1/WEEK, TRANSDERMAL
     Route: 062
  5. IBESARTAN () 150MG [Suspect]
     Indication: DRUG USE FOR UNKNOWN INDICATION
     Dosage: 150 MG, BID,
  6. FUROSEMIDE [Suspect]
     Indication: DRUG USE FOR UNKNOWN INDICATION
     Dosage: 80 MG, QD,
  7. METOLAZONE [Suspect]
     Indication: DRUG USE FOR UNKNOWN INDICATION
     Dosage: 2.5 MG, QD,
  8. INSULIN [Suspect]
     Indication: DRUG USE FOR UNKNOWN INDICATION
  9. NAPROXEN [Suspect]
     Indication: DRUG USE FOR UNKNOWN INDICATION
     Dosage: 250 MG, QD,
  10. POTASSIUM CHLORIDE 20MEQ [Suspect]
     Indication: DRUG USE FOR UNKNOWN INDICATION
     Dosage: 20 MEQ, QD,

REACTIONS (18)
  - ANGINA PECTORIS [None]
  - ASTHENIA [None]
  - BODY TEMPERATURE DECREASED [None]
  - COLD SWEAT [None]
  - CONDITION AGGRAVATED [None]
  - CREPITATIONS [None]
  - DRUG INTERACTION [None]
  - HAEMODIALYSIS [None]
  - HYPERHIDROSIS [None]
  - OEDEMA [None]
  - ORTHOPNOEA [None]
  - PALLOR [None]
  - RENAL FAILURE [None]
  - SINUS BRADYCARDIA [None]
  - SYNCOPE [None]
  - URINE OUTPUT DECREASED [None]
  - WEIGHT INCREASED [None]
  - WHEEZING [None]
